FAERS Safety Report 20639575 (Version 1)
Quarter: 2022Q1

REPORT INFORMATION
  Report Type: Spontaneous
  Country: US (occurrence: US)
  Receive Date: 20220326
  Receipt Date: 20220326
  Transmission Date: 20220424
  Serious: No
  Sender: FDA-Public Use
  Company Number: US-SANOFI-01017141

PATIENT

DRUGS (8)
  1. TOUJEO [Suspect]
     Active Substance: INSULIN GLARGINE
  2. TOUJEO [Suspect]
     Active Substance: INSULIN GLARGINE
  3. SOLIQUA 100/33 [Suspect]
     Active Substance: INSULIN GLARGINE\LIXISENATIDE
  4. LANTUS [Suspect]
     Active Substance: INSULIN GLARGINE
  5. ADMELOG [Suspect]
     Active Substance: INSULIN LISPRO
  6. TOUJEO MAX [Suspect]
     Active Substance: INSULIN GLARGINE
  7. TOUJEO MAX [Suspect]
     Active Substance: INSULIN GLARGINE
  8. LANTUS SOLOSTAR [Suspect]
     Active Substance: INSULIN GLARGINE

REACTIONS (1)
  - Product storage error [Unknown]
